FAERS Safety Report 5117144-1 (Version None)
Quarter: 2006Q3

REPORT INFORMATION
  Report Type: 
  Country: None (occurrence: None)
  Receive Date: 20060927
  Receipt Date: 20060927
  Transmission Date: 20061208
  Serious: Yes (Hospitalization, Disabling)
  Sender: FDA-Public Use
  Company Number: None

PATIENT
  Age: 70 Year
  Sex: Male

DRUGS (6)
  1. RITUXIMAB [Suspect]
     Indication: MANTLE CELL LYMPHOMA
  2. THALIDOMIDE [Suspect]
     Indication: MANTLE CELL LYMPHOMA
  3. PREDNISONE TAB [Suspect]
     Indication: MANTLE CELL LYMPHOMA
  4. ETOPOSIDE [Suspect]
     Indication: MANTLE CELL LYMPHOMA
  5. PROCARBAZINE [Suspect]
     Indication: MANTLE CELL LYMPHOMA
  6. CYCLOPHOSPHAMIDE [Suspect]
     Indication: MANTLE CELL LYMPHOMA

REACTIONS (2)
  - CARDIAC STRESS TEST ABNORMAL [None]
  - CORONARY ARTERY OCCLUSION [None]
